FAERS Safety Report 5737104-7 (Version None)
Quarter: 2008Q2

REPORT INFORMATION
  Report Type: 
  Country: None (occurrence: None)
  Receive Date: 20080514
  Receipt Date: 20080512
  Transmission Date: 20081010
  Serious: Yes (Other)
  Sender: FDA-Public Use
  Company Number: US-BAYER-200812149NA

PATIENT
  Age: 17 Year
  Sex: Female

DRUGS (2)
  1. YAZ [Suspect]
     Indication: MENSTRUAL CYCLE MANAGEMENT
     Route: 048
     Dates: start: 20080120
  2. INSULIN [Concomitant]
     Indication: TYPE 1 DIABETES MELLITUS
     Route: 058

REACTIONS (1)
  - HYPOGLYCAEMIA [None]
